FAERS Safety Report 22820825 (Version 2)
Quarter: 2023Q4

REPORT INFORMATION
  Report Type: Spontaneous
  Country: US (occurrence: US)
  Receive Date: 20230814
  Receipt Date: 20231121
  Transmission Date: 20240109
  Serious: No
  Sender: FDA-Public Use
  Company Number: US-TAKEDA-2023TUS078604

PATIENT
  Sex: Female

DRUGS (4)
  1. ENTYVIO [Suspect]
     Active Substance: VEDOLIZUMAB
     Indication: Colitis ulcerative
     Dosage: 300 MILLIGRAM
     Route: 042
  2. IBUPROFEN [Concomitant]
     Active Substance: IBUPROFEN
     Dosage: UNK
  3. ALEVE [Concomitant]
     Active Substance: NAPROXEN SODIUM
     Dosage: UNK
  4. DIFLUCAN [Concomitant]
     Active Substance: FLUCONAZOLE
     Dosage: UNK

REACTIONS (10)
  - Gait disturbance [Unknown]
  - Respiratory disorder [Unknown]
  - Vulvovaginal mycotic infection [Unknown]
  - Oral fungal infection [Unknown]
  - Arthritis [Unknown]
  - Mood swings [Unknown]
  - Dyspnoea [Unknown]
  - Arthralgia [Unknown]
  - Pruritus [Unknown]
  - Sinusitis [Unknown]
